FAERS Safety Report 15422748 (Version 1)
Quarter: 2018Q3

REPORT INFORMATION
  Report Type: Spontaneous
  Country: CN (occurrence: CN)
  Receive Date: 20180925
  Receipt Date: 20180925
  Transmission Date: 20181010
  Serious: Yes (Hospitalization)
  Sender: FDA-Public Use
  Company Number: CN-SUN PHARMACEUTICAL INDUSTRIES LTD-2018R1-175231

PATIENT
  Age: 66 Year
  Sex: Male

DRUGS (7)
  1. PIRIBEDIL [Interacting]
     Active Substance: PIRIBEDIL
     Indication: PARKINSON^S DISEASE
     Dosage: 50 MG (EVERY 6H)
     Route: 065
  2. QUETIAPINE. [Concomitant]
     Active Substance: QUETIAPINE
     Indication: PSYCHOTIC SYMPTOM
     Dosage: 12.5 MG (PER NIGHT)
     Route: 065
  3. QUETIAPINE. [Concomitant]
     Active Substance: QUETIAPINE
     Dosage: GRADUALLY INCREASED TO 25 MG, PER NIGHT
     Route: 065
  4. CARBIDOPA/LEVODOPA [Interacting]
     Active Substance: CARBIDOPA\LEVODOPA
     Dosage: REDUCED FROM HALF A PILL EVERY 6 H TO QUARTER OF A PILL EVERY 6 H.
     Route: 048
  5. SELEGILINE [Interacting]
     Active Substance: SELEGILINE
     Indication: PARKINSON^S DISEASE
     Dosage: 5 MG, UNK
     Route: 065
  6. CARBIDOPA/LEVODOPA [Suspect]
     Active Substance: CARBIDOPA\LEVODOPA
     Indication: PARKINSON^S DISEASE
     Dosage: 250 MG (EVERY 6 H)
     Route: 048
  7. SELEGILINE [Interacting]
     Active Substance: SELEGILINE
     Dosage: 5 MG, BID
     Route: 065

REACTIONS (5)
  - Hallucination [Recovering/Resolving]
  - Dizziness [Recovering/Resolving]
  - Insomnia [Recovering/Resolving]
  - Drug interaction [Unknown]
  - Mental impairment [Recovering/Resolving]
